FAERS Safety Report 11852557 (Version 5)
Quarter: 2016Q2

REPORT INFORMATION
  Report Type: Spontaneous
  Country: US (occurrence: US)
  Receive Date: 20151218
  Receipt Date: 20160511
  Transmission Date: 20160815
  Serious: No
  Sender: FDA-Public Use
  Company Number: US-GLAXOSMITHKLINE-US2015GSK178642

PATIENT
  Sex: Female

DRUGS (1)
  1. TANZEUM [Suspect]
     Active Substance: ALBIGLUTIDE
     Indication: DIABETES MELLITUS
     Dosage: 30 MG, U

REACTIONS (5)
  - Foreign body [Unknown]
  - Injury associated with device [Unknown]
  - Needle issue [Unknown]
  - Device breakage [Unknown]
  - Product quality issue [Unknown]
